FAERS Safety Report 24443622 (Version 2)
Quarter: 2024Q4

REPORT INFORMATION
  Report Type: Report from Study
  Country: US (occurrence: US)
  Receive Date: 20241016
  Receipt Date: 20241017
  Transmission Date: 20250114
  Serious: No
  Sender: ROCHE
  Company Number: US-ROCHE-1905174

PATIENT
  Age: 57 Year
  Sex: Male
  Weight: 81.5 kg

DRUGS (7)
  1. RITUXAN [Suspect]
     Active Substance: RITUXIMAB
     Indication: Multiple sclerosis
     Dosage: DAY 1 AND DAY 15, THERAPY DATES- 28/JUL/2014, 03/SEP/2014
     Route: 042
     Dates: start: 2014, end: 2017
  2. RITUXAN [Suspect]
     Active Substance: RITUXIMAB
     Indication: Neuromyelitis optica spectrum disorder
     Route: 042
  3. OCRELIZUMAB [Suspect]
     Active Substance: OCRELIZUMAB
     Indication: Neuromyelitis optica spectrum disorder
     Route: 065
  4. RITUXAN [Suspect]
     Active Substance: RITUXIMAB
     Indication: Multiple sclerosis
     Route: 065
     Dates: start: 20140903
  5. RITUXAN [Suspect]
     Active Substance: RITUXIMAB
     Indication: Neuromyelitis optica spectrum disorder
  6. TEGRETOL [Concomitant]
     Active Substance: CARBAMAZEPINE
     Route: 048
  7. CARBAMAZEPINE [Concomitant]
     Active Substance: CARBAMAZEPINE
     Route: 048

REACTIONS (11)
  - Burning sensation [Unknown]
  - Pollakiuria [Unknown]
  - Arthralgia [Unknown]
  - Pain in extremity [Unknown]
  - Back pain [Unknown]
  - Headache [Unknown]
  - Paraesthesia [Unknown]
  - Tremor [Unknown]
  - Off label use [Unknown]
  - Eye irritation [Unknown]
  - Condition aggravated [Not Recovered/Not Resolved]

NARRATIVE: CASE EVENT DATE: 20170101
